FAERS Safety Report 8890086 (Version 4)
Quarter: 2014Q4

REPORT INFORMATION
  Report Type: Spontaneous
  Country: US (occurrence: US)
  Receive Date: 20121107
  Receipt Date: 20141202
  Transmission Date: 20150529
  Serious: Yes (Hospitalization, Disabling, Other)
  Sender: FDA-Public Use
  Company Number: US-009507513-1106USA01813

PATIENT
  Sex: Female
  Weight: 78.25 kg

DRUGS (5)
  1. FOSAMAX [Suspect]
     Active Substance: ALENDRONATE SODIUM
     Indication: OSTEOPOROSIS PROPHYLAXIS
     Dosage: 70 MG, QW
     Route: 048
     Dates: start: 2001, end: 20101013
  2. CALCIUM (UNSPECIFIED) [Concomitant]
     Active Substance: CALCIUM
     Dosage: 600 MG, BID
     Dates: start: 1986
  3. FOSAMAX [Suspect]
     Active Substance: ALENDRONATE SODIUM
     Indication: OSTEOPENIA
     Dosage: 10 MG, QD
     Route: 048
     Dates: start: 2001, end: 20101013
  4. ALENDRONATE SODIUM. [Suspect]
     Active Substance: ALENDRONATE SODIUM
     Indication: OSTEOPOROSIS PROPHYLAXIS
  5. ALENDRONATE SODIUM. [Suspect]
     Active Substance: ALENDRONATE SODIUM
     Indication: OSTEOPENIA
     Dosage: 70 MG, UNK
     Route: 048
     Dates: start: 20080731, end: 201010

REACTIONS (29)
  - Bursitis [Unknown]
  - Arthralgia [Unknown]
  - Urticaria chronic [Not Recovered/Not Resolved]
  - Eczema [Unknown]
  - Vulvovaginal discomfort [Unknown]
  - Femur fracture [Not Recovered/Not Resolved]
  - Optic nerve operation [Unknown]
  - Open reduction of fracture [Unknown]
  - Fall [Unknown]
  - Depression [Unknown]
  - Cyst [Unknown]
  - Human papilloma virus test positive [Unknown]
  - Spinal osteoarthritis [Unknown]
  - Fibrocystic breast disease [Not Recovered/Not Resolved]
  - Tendonitis [Unknown]
  - Vulvovaginal mycotic infection [Unknown]
  - Arthritis [Unknown]
  - Haemorrhagic anaemia [Unknown]
  - Headache [Unknown]
  - Fall [Unknown]
  - Conjunctivitis allergic [Unknown]
  - Fatigue [Unknown]
  - Optic nerve neoplasm [Unknown]
  - Femur fracture [Recovered/Resolved]
  - Intramedullary rod insertion [Recovering/Resolving]
  - Blindness [Unknown]
  - Dermatitis contact [Unknown]
  - Sinusitis [Unknown]
  - Dermal cyst [Unknown]

NARRATIVE: CASE EVENT DATE: 20020606
